FAERS Safety Report 7145422-3 (Version None)
Quarter: 2010Q4

REPORT INFORMATION
  Report Type: 
  Country: None (occurrence: None)
  Receive Date: 20101208
  Receipt Date: 20101124
  Transmission Date: 20110411
  Serious: Yes (Other)
  Sender: FDA-Public Use
  Company Number: PHFR2010GB05106

PATIENT
  Sex: Male

DRUGS (10)
  1. CLOZARIL [Suspect]
     Indication: SCHIZOPHRENIA
     Dosage: 200MG MANE AND 225MG NOCTE
     Route: 048
     Dates: start: 20100819
  2. CLOZARIL [Suspect]
     Dosage: 200MG MANE AND 250MG NOCTE
     Route: 048
     Dates: start: 20101027
  3. CLOZARIL [Suspect]
     Dosage: 400 MG
     Route: 048
  4. CLOZARIL [Suspect]
     Dosage: 175 MG MORNING + 150 MG NIGHT
     Route: 048
  5. ENSURE [Concomitant]
     Dosage: UNK
     Route: 048
  6. LACTULOSE [Concomitant]
     Indication: CONSTIPATION
     Dosage: 15 ML
     Route: 048
  7. FYBOGEL [Concomitant]
     Indication: CONSTIPATION
     Dosage: UNK
     Route: 048
  8. SUDOCREM [Concomitant]
     Indication: ANAL ULCER
     Dosage: UNK
     Route: 061
  9. CALAMINE LOTION [Concomitant]
     Indication: HERPES ZOSTER
     Dosage: UNK
     Route: 061
  10. PREDNISOLONE [Concomitant]
     Indication: RECTAL ULCER
     Dosage: ALTERNATE DAYS
     Route: 061

REACTIONS (6)
  - CONSTIPATION [None]
  - DIZZINESS [None]
  - DROOLING [None]
  - HERPES ZOSTER [None]
  - ORTHOSTATIC HYPOTENSION [None]
  - SYNCOPE [None]
